FAERS Safety Report 16786713 (Version 1)
Quarter: 2019Q3

REPORT INFORMATION
  Report Type: Spontaneous
  Country: BR (occurrence: BR)
  Receive Date: 20190909
  Receipt Date: 20190909
  Transmission Date: 20191005
  Serious: Yes (Other)
  Sender: FDA-Public Use
  Company Number: BR-TOPROL ACQUISITION LLC-2019-TOP-001043

PATIENT
  Age: 71 Year
  Sex: Female

DRUGS (8)
  1. PREDINIUM [Concomitant]
     Indication: BLADDER DISORDER
  2. DIPYRONE [Concomitant]
     Active Substance: DIPYRONE
  3. METOPROLOL SUCCINATE. [Suspect]
     Active Substance: METOPROLOL SUCCINATE
     Indication: HYPERTENSION
     Dosage: 25 MG, QD
     Route: 048
  4. HYDROCHLOROTHIAZIDE. [Concomitant]
     Active Substance: HYDROCHLOROTHIAZIDE
  5. LORIEN [Concomitant]
     Active Substance: FLUOXETINE HYDROCHLORIDE
     Indication: INTESTINAL OPERATION
  6. ENALAPRIL MALEATE. [Concomitant]
     Active Substance: ENALAPRIL MALEATE
  7. RANITIDINE. [Concomitant]
     Active Substance: RANITIDINE
  8. SELOZOK FIX [Suspect]
     Active Substance: FELODIPINE\METOPROLOL SUCCINATE
     Indication: HYPERTENSION
     Dosage: 1 DF, QD
     Route: 048
     Dates: start: 20190505

REACTIONS (10)
  - Tremor [Recovered/Resolved]
  - Vomiting [Recovered/Resolved]
  - Blood pressure increased [Recovered/Resolved]
  - Dysstasia [Recovered/Resolved]
  - Asthenopia [Recovered/Resolved]
  - Hypersensitivity [Recovered/Resolved]
  - Speech disorder [Recovered/Resolved]
  - Headache [Recovered/Resolved]
  - Drug ineffective [Recovered/Resolved]
  - Loss of consciousness [Recovered/Resolved]

NARRATIVE: CASE EVENT DATE: 20190505
